FAERS Safety Report 8416723-3 (Version None)
Quarter: 2012Q2

REPORT INFORMATION
  Report Type: 
  Country: None (occurrence: None)
  Receive Date: 20120323
  Receipt Date: 20110223
  Transmission Date: 20120825
  Serious: Yes (Other)
  Sender: FDA-Public Use
  Company Number: 163-21880-11023036

PATIENT
  Age: 67 Year
  Sex: Male
  Weight: 94.09 kg

DRUGS (7)
  1. AMLODIPINE [Concomitant]
  2. TAMSULOSIN HCL [Concomitant]
  3. REVLIMID [Suspect]
     Indication: MULTIPLE MYELOMA
     Dosage: 15 MG, DAILY X 21 DAYS, PO ; 10 MG, DAILY X 21 DAYS, PO
     Route: 048
     Dates: start: 20110201
  4. REVLIMID [Suspect]
     Indication: MULTIPLE MYELOMA
     Dosage: 15 MG, DAILY X 21 DAYS, PO ; 10 MG, DAILY X 21 DAYS, PO
     Route: 048
     Dates: start: 20101227
  5. FRAGMIN [Concomitant]
  6. ASPIRIN [Concomitant]
  7. CENTRUM (CENTRUM) [Concomitant]

REACTIONS (1)
  - THROMBOSIS [None]
